FAERS Safety Report 9742905 (Version 1)
Quarter: 2013Q4

REPORT INFORMATION
  Report Type: Spontaneous
  Country: US (occurrence: US)
  Receive Date: 20131210
  Receipt Date: 20131210
  Transmission Date: 20140711
  Serious: No
  Sender: FDA-Public Use
  Company Number: US-VIIV HEALTHCARE LIMITED-A1045250A

PATIENT
  Sex: 0

DRUGS (2)
  1. TIVICAY [Suspect]
     Indication: HIV INFECTION
     Route: 048
  2. UNKNOWN [Concomitant]

REACTIONS (1)
  - Somnolence [Unknown]
